FAERS Safety Report 26007441 (Version 2)
Quarter: 2025Q4

REPORT INFORMATION
  Report Type: Spontaneous
  Country: US (occurrence: US)
  Receive Date: 20251106
  Receipt Date: 20251110
  Transmission Date: 20260117
  Serious: Yes (Life-Threatening, Other)
  Sender: PFIZER
  Company Number: US-PFIZER INC-PV202500129842

PATIENT
  Age: 64 Year
  Sex: Male

DRUGS (2)
  1. PROPOFOL [Suspect]
     Active Substance: PROPOFOL
     Indication: Sedation
     Dosage: UNK
     Route: 041
  2. FENTANYL [Concomitant]
     Active Substance: FENTANYL
     Indication: Sedation
     Dosage: UNK
     Route: 041

REACTIONS (1)
  - Hypertriglyceridaemia [Recovered/Resolved]
